FAERS Safety Report 8240474-1 (Version None)
Quarter: 2012Q1

REPORT INFORMATION
  Report Type: 
  Country: None (occurrence: None)
  Receive Date: 20120328
  Receipt Date: 20120315
  Transmission Date: 20120608
  Serious: Yes (Hospitalization)
  Sender: FDA-Public Use
  Company Number: JP-PFIZER INC-2012069712

PATIENT
  Age: 61 Year
  Sex: Female

DRUGS (6)
  1. VOLTAREN [Concomitant]
     Dosage: UNK
     Route: 048
     Dates: start: 20080101, end: 20120303
  2. CELECOXIB [Suspect]
     Dosage: 200MG, UNK
     Route: 048
     Dates: start: 20120217, end: 20120303
  3. LIPITOR [Suspect]
     Dosage: 10 MG, UNK
     Route: 048
     Dates: start: 20080101, end: 20120303
  4. OPALMON [Concomitant]
     Dosage: UNK
     Route: 048
     Dates: start: 20080101, end: 20120303
  5. AMLODIPINE [Concomitant]
     Dosage: UNK
     Route: 048
     Dates: start: 20080101, end: 20120303
  6. LYRICA [Concomitant]
     Dosage: UNK
     Route: 048
     Dates: start: 20110101, end: 20120303

REACTIONS (7)
  - PRURITUS [None]
  - JAUNDICE [None]
  - BLOOD BILIRUBIN INCREASED [None]
  - ABDOMINAL PAIN UPPER [None]
  - ASPARTATE AMINOTRANSFERASE INCREASED [None]
  - ALANINE AMINOTRANSFERASE INCREASED [None]
  - GAMMA-GLUTAMYLTRANSFERASE INCREASED [None]
